FAERS Safety Report 16058096 (Version 2)
Quarter: 2019Q2

REPORT INFORMATION
  Report Type: Report from Study
  Country: DE (occurrence: DE)
  Receive Date: 20190311
  Receipt Date: 20190405
  Transmission Date: 20190711
  Serious: Yes (Death, Hospitalization, Other)
  Sender: FDA-Public Use
  Company Number: DE-BRISTOL-MYERS SQUIBB COMPANY-BMS-2019-008411

PATIENT
  Age: 62 Year
  Sex: Male
  Weight: 108 kg

DRUGS (3)
  1. LIXIANA [Concomitant]
     Active Substance: EDOXABAN TOSYLATE
     Indication: ANTICOAGULANT THERAPY
     Dosage: 60 MG, UNK
     Route: 048
  2. NIVOLUMAB [Suspect]
     Active Substance: NIVOLUMAB
     Indication: TRANSITIONAL CELL CARCINOMA METASTATIC
     Dosage: 240 MILLIGRAM
     Route: 042
     Dates: start: 20190115
  3. TOREM                              /01036501/ [Concomitant]
     Active Substance: TORSEMIDE
     Indication: HYPERTENSION
     Dosage: 10 MG, UNK
     Route: 048

REACTIONS (3)
  - Anaemia of malignant disease [Not Recovered/Not Resolved]
  - Malignant neoplasm progression [Fatal]
  - Diarrhoea [Not Recovered/Not Resolved]

NARRATIVE: CASE EVENT DATE: 20190122
